FAERS Safety Report 8879476 (Version 1)
Quarter: 2012Q4

REPORT INFORMATION
  Report Type: 
  Country: SI (occurrence: SI)
  Receive Date: 20121101
  Receipt Date: 20121101
  Transmission Date: 20130627
  Serious: Yes (Life-Threatening, Hospitalization)
  Sender: FDA-Public Use
  Company Number: SI-BAYER-2012-104376

PATIENT
  Age: 33 Year
  Sex: Female
  Weight: 73 kg

DRUGS (1)
  1. MIRENA [Suspect]
     Indication: CONTRACEPTION
     Dosage: 20 mcg/24hr, CONT
     Route: 015
     Dates: start: 20081008, end: 20120926

REACTIONS (4)
  - Ectopic pregnancy with intrauterine device [Recovered/Resolved]
  - Amenorrhoea [Recovered/Resolved]
  - Abdominal pain lower [Recovered/Resolved]
  - Salpingo-oophorectomy [Recovered/Resolved]
